FAERS Safety Report 4580258-9 (Version None)
Quarter: 2005Q1

REPORT INFORMATION
  Report Type: 
  Country: None (occurrence: None)
  Receive Date: 20050214
  Receipt Date: 20050201
  Transmission Date: 20050727
  Serious: Yes (Hospitalization, Other)
  Sender: FDA-Public Use
  Company Number: BE-GLAXOSMITHKLINE-B0369522A

PATIENT
  Age: 75 Year
  Sex: Female
  Weight: 65 kg

DRUGS (5)
  1. GR270773 [Suspect]
     Indication: SEPSIS
     Route: 042
     Dates: start: 20050126, end: 20050129
  2. AUGMENTIN '125' [Suspect]
     Indication: PERITONITIS
     Dosage: 2G THREE TIMES PER DAY
     Route: 042
     Dates: start: 20050125
  3. AMUKIN [Concomitant]
     Indication: SEPSIS
     Dosage: 1G PER DAY
     Route: 042
     Dates: start: 20050126
  4. TPN [Concomitant]
  5. VASOPRESSOR [Concomitant]

REACTIONS (9)
  - BLOOD ALKALINE PHOSPHATASE INCREASED [None]
  - BLOOD BILIRUBIN INCREASED [None]
  - CHOLECYSTITIS [None]
  - CHOLELITHIASIS [None]
  - ESCHERICHIA SEPSIS [None]
  - GAMMA-GLUTAMYLTRANSFERASE INCREASED [None]
  - HAEMODYNAMIC INSTABILITY [None]
  - MULTI-ORGAN FAILURE [None]
  - PERITONITIS [None]
